FAERS Safety Report 13951851 (Version 1)
Quarter: 2017Q3

REPORT INFORMATION
  Report Type: Report from Study
  Country: US (occurrence: US)
  Receive Date: 20170908
  Receipt Date: 20170908
  Transmission Date: 20171128
  Serious: Yes (Hospitalization)
  Sender: FDA-Public Use
  Company Number: US-ACTELION-A-US2016-142813

PATIENT
  Age: 61 Year
  Sex: Female

DRUGS (5)
  1. OPSUMIT [Suspect]
     Active Substance: MACITENTAN
     Indication: PULMONARY ARTERIAL HYPERTENSION
     Dosage: 10 MG, QD
     Route: 048
     Dates: start: 20160825
  2. PROCRIT [Concomitant]
     Active Substance: ERYTHROPOIETIN
  3. SILDENAFIL. [Concomitant]
     Active Substance: SILDENAFIL
  4. TREPROSTINIL [Concomitant]
     Active Substance: TREPROSTINIL
  5. WARFARIN [Concomitant]
     Active Substance: WARFARIN

REACTIONS (8)
  - Cardiac operation [Unknown]
  - Diarrhoea [Not Recovered/Not Resolved]
  - Malaise [Unknown]
  - Fluid overload [Not Recovered/Not Resolved]
  - Mitral valve repair [Unknown]
  - Contusion [Not Recovered/Not Resolved]
  - Cardiac disorder [Unknown]
  - Headache [Recovered/Resolved]

NARRATIVE: CASE EVENT DATE: 2017
